FAERS Safety Report 17262010 (Version 1)
Quarter: 2019Q4

REPORT INFORMATION
  Report Type: Spontaneous
  Country: US (occurrence: US)
  Receive Date: 20191218
  Receipt Date: 20191218
  Transmission Date: 20200122
  Serious: Yes (Other)
  Sender: FDA-Public Use
  Company Number: None

PATIENT
  Age: 51 Year
  Sex: Female
  Weight: 74.39 kg

DRUGS (4)
  1. EFFEXOR [Concomitant]
     Active Substance: VENLAFAXINE HYDROCHLORIDE
  2. PRAMIPEXOLE 6/0.25MG 1R [Suspect]
     Active Substance: PRAMIPEXOLE
     Indication: DEPRESSION
     Dosage: 3 TABS DAILY  START DATE( TRAL 2017)
  3. PRAMIPEXOLE 0.75MG XR [Suspect]
     Active Substance: PRAMIPEXOLE
  4. WELLBUTRIN [Concomitant]
     Active Substance: BUPROPION HYDROCHLORIDE

REACTIONS (6)
  - Social problem [None]
  - Neuropathy peripheral [None]
  - Restless legs syndrome [None]
  - Dependence [None]
  - Dyskinesia [None]
  - Drug ineffective [None]
